FAERS Safety Report 4650497-7 (Version None)
Quarter: 2005Q2

REPORT INFORMATION
  Report Type: 
  Country: None (occurrence: None)
  Receive Date: 20050429
  Receipt Date: 20050407
  Transmission Date: 20051028
  Serious: Yes (Other)
  Sender: FDA-Public Use
  Company Number: 2005-00813

PATIENT
  Age: 65 Year
  Sex: Male

DRUGS (20)
  1. INTEGRILIN [Suspect]
     Indication: CORONARY ANGIOPLASTY
     Dosage: SEE IMAGE
     Route: 042
     Dates: start: 20050316, end: 20050316
  2. INTEGRILIN [Suspect]
     Indication: CORONARY ANGIOPLASTY
     Dosage: SEE IMAGE
     Route: 042
     Dates: start: 20050316, end: 20050316
  3. INTEGRILIN [Suspect]
     Indication: CORONARY ANGIOPLASTY
     Dosage: SEE IMAGE
     Route: 042
     Dates: start: 20050315
  4. INTEGRILIN [Suspect]
     Indication: CORONARY ANGIOPLASTY
     Dosage: SEE IMAGE
     Route: 042
     Dates: start: 20050316
  5. PLAVIX [Concomitant]
  6. ENALAPRIL MALEATE [Concomitant]
  7. QD3GUTOLOL HYDROCHLORIDE (ACEBUTOLOL HYDROCHLORIDE) [Concomitant]
  8. ASPIRIN [Concomitant]
  9. DIAZEPAM [Concomitant]
  10. ATORVASTATIN CALCIUM [Concomitant]
  11. KEFEXIN (CEFALEXIN MONOHYDRATE) [Concomitant]
  12. ISOSORBIDE MONONITRATE [Concomitant]
  13. FURSEMIDE (FUROSEMDIE) [Concomitant]
  14. PARACETAMOL WITH CODEINE (CODEINE PHOSPHATE, PARACETAMOL) [Concomitant]
  15. LIGNOCAINE HYDROCHLORIDE (LIDOCAINE HYDROCHLORIDE) [Concomitant]
  16. HEPARIN [Concomitant]
  17. VISIPAQUE (TROMETAMOL, IODIXANOL) [Concomitant]
  18. OXYCODONE HCL [Concomitant]
  19. ATARAX [Concomitant]
  20. PREDNISONE [Concomitant]

REACTIONS (3)
  - CORONARY ARTERY RESTENOSIS [None]
  - FLUID RETENTION [None]
  - THROMBOCYTOPENIA [None]
